FAERS Safety Report 21182421 (Version 1)
Quarter: 2022Q3

REPORT INFORMATION
  Report Type: Spontaneous
  Country: US (occurrence: US)
  Receive Date: 20220807
  Receipt Date: 20220807
  Transmission Date: 20221027
  Serious: Yes (Other)
  Sender: FDA-Public Use
  Company Number: US-SUN PHARMACEUTICAL INDUSTRIES LTD-2021R1-316650

PATIENT
  Age: 14 Year
  Sex: Male

DRUGS (2)
  1. ABSORICA LD [Suspect]
     Active Substance: ISOTRETINOIN
     Indication: Product used for unknown indication
     Dosage: 16 MG
     Route: 065
     Dates: start: 202006, end: 202107
  2. ABSORICA LD [Suspect]
     Active Substance: ISOTRETINOIN
     Dosage: 32 MG
     Route: 065
     Dates: start: 202006, end: 202107

REACTIONS (1)
  - Epiphyses premature fusion [Unknown]
